FAERS Safety Report 6115076-3 (Version None)
Quarter: 2009Q1

REPORT INFORMATION
  Report Type: 
  Country: None (occurrence: None)
  Receive Date: 20090313
  Receipt Date: 20090305
  Transmission Date: 20090719
  Serious: Yes (Other)
  Sender: FDA-Public Use
  Company Number: B0563413A

PATIENT
  Age: 60 Year
  Sex: Female
  Weight: 94 kg

DRUGS (10)
  1. FLIXONASE [Suspect]
     Dosage: 12 PER DAY
     Route: 045
     Dates: start: 20090216, end: 20090217
  2. SERETIDE [Concomitant]
     Route: 065
  3. MONTELUKAST [Concomitant]
     Route: 065
  4. LORATADINE [Concomitant]
     Route: 065
  5. EPADERM [Concomitant]
     Route: 065
  6. OMEPRAZOLE [Concomitant]
     Route: 065
  7. ACETAMINOPHEN W/ CODEINE [Concomitant]
     Route: 065
  8. MEBEVERINE HYDROCHLORIDE [Concomitant]
     Route: 065
  9. GAVISCON [Concomitant]
     Route: 065
  10. SALBUTAMOL [Concomitant]
     Route: 065

REACTIONS (2)
  - LACRIMATION INCREASED [None]
  - SWELLING FACE [None]
